FAERS Safety Report 15981590 (Version 1)
Quarter: 2019Q1

REPORT INFORMATION
  Report Type: Spontaneous
  Country: SA (occurrence: SA)
  Receive Date: 20190219
  Receipt Date: 20190219
  Transmission Date: 20190418
  Serious: Yes (Hospitalization)
  Sender: FDA-Public Use
  Company Number: None

PATIENT
  Age: 64 Year
  Sex: Male

DRUGS (1)
  1. TACROLIMUS. [Suspect]
     Active Substance: TACROLIMUS

REACTIONS (8)
  - Acute kidney injury [None]
  - Chronic kidney disease [None]
  - Electrolyte imbalance [None]
  - Constipation [None]
  - Haematemesis [None]
  - Hypophagia [None]
  - Toxicity to various agents [None]
  - Confusional state [None]
